FAERS Safety Report 5443474-X (Version None)
Quarter: 2007Q3

REPORT INFORMATION
  Report Type: 
  Country: None (occurrence: None)
  Receive Date: 20070905
  Receipt Date: 20070824
  Transmission Date: 20080115
  Serious: Yes (Hospitalization)
  Sender: FDA-Public Use
  Company Number: CH-ROCHE-513405

PATIENT
  Age: 31 Year
  Sex: Female
  Weight: 60 kg

DRUGS (2)
  1. ROACCUTAN [Suspect]
     Indication: ACNE
     Route: 048
     Dates: start: 20040501, end: 20040901
  2. ROACCUTAN [Suspect]
     Route: 048
     Dates: start: 19940101, end: 19950101

REACTIONS (7)
  - ANXIETY [None]
  - CHEST DISCOMFORT [None]
  - DECREASED APPETITE [None]
  - DEPRESSED MOOD [None]
  - HYPERHIDROSIS [None]
  - PALPITATIONS [None]
  - SLEEP DISORDER [None]
